FAERS Safety Report 16474739 (Version 1)
Quarter: 2019Q2

REPORT INFORMATION
  Report Type: Spontaneous
  Country: US (occurrence: US)
  Receive Date: 20190624
  Receipt Date: 20190624
  Transmission Date: 20190711
  Serious: Yes (Life-Threatening, Disabling)
  Sender: FDA-Public Use
  Company Number: None

PATIENT
  Age: 26 Year
  Sex: Female
  Weight: 48.6 kg

DRUGS (3)
  1. CARBAMEZEPINE [Concomitant]
     Active Substance: CARBAMAZEPINE
  2. KRATOM [Suspect]
     Active Substance: HERBALS\MITRAGYNINE
     Indication: ANXIETY
     Route: 048
  3. TOPAMAX [Concomitant]
     Active Substance: TOPIRAMATE

REACTIONS (1)
  - Lung adenocarcinoma [None]

NARRATIVE: CASE EVENT DATE: 20190524
